FAERS Safety Report 26173511 (Version 1)
Quarter: 2025Q4

REPORT INFORMATION
  Report Type: Spontaneous
  Country: US (occurrence: US)
  Receive Date: 20251218
  Receipt Date: 20251218
  Transmission Date: 20260118
  Serious: Yes (Other)
  Sender: GC Biopharma
  Company Number: US-GC BIOPHARMA-US-2025-GCBP-00030

PATIENT
  Age: 51 Year
  Sex: Male
  Weight: 105.69 kg

DRUGS (5)
  1. ALYGLO [Suspect]
     Active Substance: HUMAN IMMUNOGLOBULIN G-STWK
     Indication: Polymyositis
     Dosage: 60 GRAM, UNK (20GM, 3 VIALS FOR EACH INFUSION)
     Route: 042
     Dates: start: 20250927, end: 20250927
  2. ALYGLO [Suspect]
     Active Substance: HUMAN IMMUNOGLOBULIN G-STWK
     Dosage: UNK
     Route: 042
     Dates: start: 20250228
  3. BENADRYL [Concomitant]
     Active Substance: DIPHENHYDRAMINE HYDROCHLORIDE
     Indication: Premedication
     Dosage: 25 MILLIGRAM, IVP OR PO
     Route: 065
     Dates: start: 20250926, end: 20250928
  4. TYLENOL [Concomitant]
     Active Substance: ACETAMINOPHEN
     Indication: Premedication
     Dosage: 650 MILLIGRAM
     Route: 048
     Dates: start: 20250926, end: 20250928
  5. SODIUM CHLORIDE [Concomitant]
     Active Substance: SODIUM CHLORIDE
     Indication: Premedication
     Dosage: IV OVER 30 - 60 MINS PRIOR TO INFUSION
     Route: 042
     Dates: start: 20250926, end: 20250928

REACTIONS (3)
  - Urticaria [Recovered/Resolved]
  - Pruritus [Recovered/Resolved]
  - Off label use [Unknown]

NARRATIVE: CASE EVENT DATE: 20250228
